FAERS Safety Report 14900610 (Version 4)
Quarter: 2018Q2

REPORT INFORMATION
  Report Type: Report from Study
  Country: AR (occurrence: AR)
  Receive Date: 20180516
  Receipt Date: 20180626
  Transmission Date: 20180711
  Serious: Yes (Other)
  Sender: FDA-Public Use
  Company Number: PHHY2018AR006559

PATIENT
  Sex: Female

DRUGS (9)
  1. DIOVAN [Suspect]
     Active Substance: VALSARTAN
     Indication: HYPERTENSION
     Dosage: 1 DF, QD (10 YEARS AGO)
     Route: 065
  2. TIMOLOL. [Suspect]
     Active Substance: TIMOLOL
     Indication: PRODUCT USED FOR UNKNOWN INDICATION
     Route: 065
  3. VALSARTAN. [Concomitant]
     Active Substance: VALSARTAN
     Indication: HYPERTENSION
     Dosage: 160 MG, UNK (SEVERAL YEARS AGO)
     Route: 065
  4. TRAVATAN [Suspect]
     Active Substance: TRAVOPROST
     Indication: OCULAR HYPERTENSION
     Dosage: 1 DRP, QD (AT NIGHT)
     Route: 065
  5. ISLOTIN [Concomitant]
     Indication: DIABETES MELLITUS
     Route: 065
  6. PLOSTIM [Suspect]
     Active Substance: TIMOLOL MALEATE
     Indication: PRODUCT USED FOR UNKNOWN INDICATION
     Dosage: 1 DRP, QD (MORNING)
     Route: 065
  7. AMARYL [Concomitant]
     Active Substance: GLIMEPIRIDE
     Indication: DIABETES MELLITUS
     Dosage: TWO MONTHS AGO
     Route: 065
  8. DUOTRAV (ALC) [Suspect]
     Active Substance: TIMOLOL MALEATE\TRAVOPROST
     Indication: OPEN ANGLE GLAUCOMA
     Dosage: 1 DRP, QN (AROUND 7 YEARS AGO)
     Route: 065
  9. LASIX [Concomitant]
     Active Substance: FUROSEMIDE
     Indication: PRODUCT USED FOR UNKNOWN INDICATION
     Route: 065

REACTIONS (9)
  - Open angle glaucoma [Unknown]
  - Nervousness [Unknown]
  - Visual acuity reduced [Unknown]
  - Angle closure glaucoma [Unknown]
  - Growth of eyelashes [Unknown]
  - Anaemia [Unknown]
  - Intraocular pressure increased [Unknown]
  - Cataract [Unknown]
  - Eye oedema [Unknown]
